FAERS Safety Report 13212302 (Version 1)
Quarter: 2017Q1

REPORT INFORMATION
  Report Type: Spontaneous
  Country: US (occurrence: US)
  Receive Date: 20170209
  Receipt Date: 20170209
  Transmission Date: 20170428
  Serious: No
  Sender: FDA-Public Use
  Company Number: US-ALLERGAN-1653029US

PATIENT
  Age: 31 Year
  Sex: Female
  Weight: 58.96 kg

DRUGS (2)
  1. BOTOX COSMETIC [Suspect]
     Active Substance: ONABOTULINUMTOXINA
     Indication: SKIN WRINKLING
     Dosage: 24 UNITS, SINGLE
     Route: 030
     Dates: start: 20160324, end: 20160324
  2. ALBUTEROL. [Concomitant]
     Active Substance: ALBUTEROL
     Indication: ASTHMA

REACTIONS (16)
  - Dizziness [Unknown]
  - Dyspnoea [Unknown]
  - Neck pain [Unknown]
  - Vision blurred [Unknown]
  - Musculoskeletal pain [Unknown]
  - Dysphagia [Unknown]
  - Speech disorder [Unknown]
  - Pruritus [Unknown]
  - Head discomfort [Unknown]
  - Feeling abnormal [Unknown]
  - Tremor [Unknown]
  - Headache [Unknown]
  - Decreased appetite [Unknown]
  - Muscular weakness [Unknown]
  - Dysphonia [Unknown]
  - Dry mouth [Unknown]

NARRATIVE: CASE EVENT DATE: 20160324
